FAERS Safety Report 8251976-6 (Version None)
Quarter: 2012Q2

REPORT INFORMATION
  Report Type: 
  Country: None (occurrence: None)
  Receive Date: 20120402
  Receipt Date: 20120326
  Transmission Date: 20120825
  Serious: Yes (Other)
  Sender: FDA-Public Use
  Company Number: PHHY2012DE026539

PATIENT
  Sex: Female

DRUGS (4)
  1. ALENDRONIC ACID [Suspect]
     Dosage: UNK
     Dates: start: 20050101, end: 20090901
  2. CALCIUM CARBONATE [Concomitant]
     Indication: OSTEOPOROSIS
     Dosage: UNK
  3. VITAMIN D [Concomitant]
     Indication: OSTEOPOROSIS
     Dosage: UNK
  4. ALENDRONIC ACID [Suspect]
     Dosage: 70 MG, QW
     Dates: start: 20010101, end: 20040101

REACTIONS (2)
  - FEMUR FRACTURE [None]
  - FALL [None]
